FAERS Safety Report 13387799 (Version 1)
Quarter: 2017Q1

REPORT INFORMATION
  Report Type: Spontaneous
  Country: US (occurrence: US)
  Receive Date: 20170330
  Receipt Date: 20170330
  Transmission Date: 20170429
  Serious: No
  Sender: FDA-Public Use
  Company Number: US-009507513-1703USA006184

PATIENT

DRUGS (1)
  1. DULERA [Suspect]
     Active Substance: FORMOTEROL FUMARATE DIHYDRATE\MOMETASONE FUROATE
     Dosage: 2 PUFFS, BID, THERAPY ROUTE: ORAL INHALATION

REACTIONS (4)
  - Drug dose omission [Unknown]
  - No adverse event [Unknown]
  - Accidental exposure to product [Unknown]
  - Device malfunction [Unknown]
